FAERS Safety Report 16542052 (Version 1)
Quarter: 2019Q3

REPORT INFORMATION
  Report Type: Spontaneous
  Country: US (occurrence: US)
  Receive Date: 20190524
  Receipt Date: 20190524
  Transmission Date: 20191004
  Serious: Yes (Hospitalization)
  Sender: FDA-Public Use
  Company Number: None

PATIENT
  Age: 52 Year
  Sex: Female

DRUGS (1)
  1. LETAIRIS [Suspect]
     Active Substance: AMBRISENTAN
     Indication: PULMONARY ARTERIAL HYPERTENSION
     Route: 048
     Dates: start: 20190427

REACTIONS (9)
  - Nausea [None]
  - Respiratory failure [None]
  - Vomiting [None]
  - Sepsis [None]
  - Hypoxia [None]
  - Pneumonia viral [None]
  - Dyspnoea [None]
  - Cough [None]
  - Diarrhoea [None]

NARRATIVE: CASE EVENT DATE: 20190522
